FAERS Safety Report 5857081-8 (Version None)
Quarter: 2008Q3

REPORT INFORMATION
  Report Type: 
  Country: None (occurrence: None)
  Receive Date: 20080825
  Receipt Date: 20080816
  Transmission Date: 20090109
  Serious: No
  Sender: FDA-Public Use
  Company Number: US-BOEHRINGER INGELHEIM GMBH, GERMANY-2008-BP-12997BP

PATIENT
  Sex: Female

DRUGS (10)
  1. SPIRIVA [Suspect]
     Indication: CHRONIC OBSTRUCTIVE PULMONARY DISEASE
     Route: 055
     Dates: start: 20080301
  2. ALENDRONATE SODIUM [Suspect]
     Route: 048
  3. FUROSEMIDE [Concomitant]
     Route: 048
  4. KLOR-CON [Concomitant]
     Route: 048
  5. LIPITOR [Concomitant]
     Route: 048
  6. METOPROLOL TARTRATE [Concomitant]
     Route: 048
  7. PROAIR HFA [Concomitant]
     Route: 055
  8. SERTRALINE [Concomitant]
     Route: 048
  9. SYNTHROID [Concomitant]
     Route: 048
  10. TRAZODONE HCL [Concomitant]
     Route: 048

REACTIONS (1)
  - GLOSSITIS [None]
